FAERS Safety Report 21521092 (Version 2)
Quarter: 2022Q4

REPORT INFORMATION
  Report Type: Report from Study
  Country: IN (occurrence: IN)
  Receive Date: 20221028
  Receipt Date: 20221227
  Transmission Date: 20230112
  Serious: Yes (Hospitalization)
  Sender: FDA-Public Use
  Company Number: IN-BIOGEN-2022BI01164488

PATIENT
  Age: 24 Year
  Sex: Male

DRUGS (2)
  1. PLEGRIDY [Suspect]
     Active Substance: PEGINTERFERON BETA-1A
     Indication: Multiple sclerosis
     Route: 050
     Dates: start: 20220228
  2. DALSTEP [Concomitant]
     Indication: Product used for unknown indication
     Route: 050

REACTIONS (4)
  - Injection site swelling [Recovered/Resolved]
  - Gait inability [Recovered/Resolved]
  - Hypoaesthesia [Recovered/Resolved]
  - Injection site reaction [Not Recovered/Not Resolved]

NARRATIVE: CASE EVENT DATE: 20220701
